FAERS Safety Report 20943682 (Version 1)
Quarter: 2022Q2

REPORT INFORMATION
  Report Type: Spontaneous
  Country: US (occurrence: US)
  Receive Date: 20220610
  Receipt Date: 20220610
  Transmission Date: 20220720
  Serious: No
  Sender: FDA-Public Use
  Company Number: US-Global Blood Therapeutics Inc-US-GBT-22-01857

PATIENT
  Age: 54 Year
  Sex: Female

DRUGS (1)
  1. OXBRYTA [Suspect]
     Active Substance: VOXELOTOR
     Indication: Sickle cell disease
     Route: 048
     Dates: start: 20211217, end: 20220313

REACTIONS (4)
  - Skin hyperpigmentation [Unknown]
  - Scar [Unknown]
  - Skin plaque [Unknown]
  - Pruritus [Unknown]

NARRATIVE: CASE EVENT DATE: 20220301
